FAERS Safety Report 17851788 (Version 1)
Quarter: 2020Q2

REPORT INFORMATION
  Report Type: Spontaneous
  Country: US (occurrence: US)
  Receive Date: 20200602
  Receipt Date: 20200602
  Transmission Date: 20200714
  Serious: No
  Sender: FDA-Public Use
  Company Number: US-TARO-2019TAR00472

PATIENT
  Age: 60 Year
  Sex: Male
  Weight: 108.84 kg

DRUGS (3)
  1. TREMFYA [Concomitant]
     Active Substance: GUSELKUMAB
     Indication: PSORIASIS
     Dosage: UNK
  2. UNSPECIFIED SUPPLEMENTS [Concomitant]
  3. IMIQUIMOD CREAM 5% [Suspect]
     Active Substance: IMIQUIMOD
     Indication: ANOGENITAL WARTS
     Dosage: 1 DOSAGE UNITS, 3X/WEEK
     Route: 061
     Dates: start: 201906

REACTIONS (7)
  - Inappropriate schedule of product administration [Recovered/Resolved]
  - Application site exfoliation [Recovering/Resolving]
  - Application site discolouration [Recovering/Resolving]
  - Application site wound [Recovering/Resolving]
  - Hyperaesthesia [Not Recovered/Not Resolved]
  - Application site erythema [Recovering/Resolving]
  - Application site haemorrhage [Recovering/Resolving]

NARRATIVE: CASE EVENT DATE: 201906
